FAERS Safety Report 13487211 (Version 1)
Quarter: 2017Q2

REPORT INFORMATION
  Report Type: Spontaneous
  Country: FR (occurrence: FR)
  Receive Date: 20170426
  Receipt Date: 20170426
  Transmission Date: 20170830
  Serious: Yes (Hospitalization)
  Sender: FDA-Public Use
  Company Number: ALCN2017FR002937

PATIENT
  Age: 0 Day
  Sex: Female
  Weight: 3.05 kg

DRUGS (2)
  1. DUOTRAV [BAC] [Suspect]
     Active Substance: TIMOLOL\TRAVOPROST
     Indication: FOETAL EXPOSURE DURING PREGNANCY
     Dosage: MATERNAL DOSE:1 GTT, QD (1 DROP IN BOTH EYES)
     Route: 064
  2. AZOPT [Suspect]
     Active Substance: BRINZOLAMIDE
     Indication: FOETAL EXPOSURE DURING PREGNANCY
     Dosage: MATERNAL DOSE:TID (1 DROP IN BOTH EYES)
     Route: 064

REACTIONS (2)
  - Foetal heart rate disorder [Recovered/Resolved]
  - Tachypnoea [Recovered/Resolved]

NARRATIVE: CASE EVENT DATE: 20080321
